FAERS Safety Report 4837061-1 (Version None)
Quarter: 2005Q4

REPORT INFORMATION
  Report Type: 
  Country: None (occurrence: None)
  Receive Date: 20051121
  Receipt Date: 20051121
  Transmission Date: 20060501
  Serious: Yes (Hospitalization)
  Sender: FDA-Public Use
  Company Number: None

PATIENT
  Age: 61 Year
  Sex: Male
  Weight: 81.1939 kg

DRUGS (8)
  1. AVASTIN [Suspect]
     Indication: COLON CANCER
     Dosage: 5 MG/KG Q2 WEEKS IV
     Route: 042
     Dates: start: 20051008
  2. AVASTIN [Suspect]
     Indication: COLON CANCER
     Dosage: 5 MG/KG Q2 WEEKS IV
     Route: 042
     Dates: start: 20051026
  3. FLUOROURACIL [Concomitant]
  4. OXALIPLATIN [Concomitant]
  5. LCV [Concomitant]
  6. DILANTIN [Concomitant]
  7. ZOFRAN [Concomitant]
  8. OXYCODONE [Concomitant]

REACTIONS (1)
  - PULMONARY EMBOLISM [None]
